FAERS Safety Report 15016461 (Version 3)
Quarter: 2018Q4

REPORT INFORMATION
  Report Type: Report from Study
  Country: US (occurrence: US)
  Receive Date: 20180615
  Receipt Date: 20181106
  Transmission Date: 20190204
  Serious: Yes (Other)
  Sender: FDA-Public Use
  Company Number: PHEH2018US023261

PATIENT
  Sex: Female

DRUGS (2)
  1. METHOTREXATE. [Concomitant]
     Active Substance: METHOTREXATE
     Indication: PRODUCT USED FOR UNKNOWN INDICATION
     Route: 065
  2. COSENTYX [Suspect]
     Active Substance: SECUKINUMAB
     Indication: PSORIASIS
     Dosage: UNK
     Route: 058

REACTIONS (12)
  - Osteoporosis [Unknown]
  - Hypoacusis [Unknown]
  - Mass [Unknown]
  - Brain neoplasm [Unknown]
  - Visual impairment [Unknown]
  - Neuropathy peripheral [Unknown]
  - Fibromyalgia [Unknown]
  - Weight decreased [Unknown]
  - Back pain [Unknown]
  - Arthralgia [Unknown]
  - Feeling cold [Unknown]
  - Hypertension [Unknown]
